FAERS Safety Report 22517373 (Version 1)
Quarter: 2023Q2

REPORT INFORMATION
  Report Type: Spontaneous
  Country: FR (occurrence: FR)
  Receive Date: 20230603
  Receipt Date: 20230603
  Transmission Date: 20230722
  Serious: Yes (Life-Threatening, Other)
  Sender: FDA-Public Use
  Company Number: None

PATIENT

DRUGS (7)
  1. ZONEGRAN [Suspect]
     Active Substance: ZONISAMIDE
     Indication: Product administration error
     Dosage: 400 MG (2CP DE 200MG)
     Route: 048
     Dates: start: 20230507
  2. ALFUZOSIN [Suspect]
     Active Substance: ALFUZOSIN
     Indication: Product administration error
     Dosage: 10 MG (1CP)
     Route: 048
     Dates: start: 20230507
  3. DAFALGAN [Suspect]
     Active Substance: ACETAMINOPHEN
     Indication: Product administration error
     Dosage: 1 G
     Route: 048
     Dates: start: 20230507
  4. BUPRENORPHINE HYDROCHLORIDE [Suspect]
     Active Substance: BUPRENORPHINE HYDROCHLORIDE
     Indication: Product administration error
     Dosage: 0.4 MG (2X0.2MG)
     Route: 048
     Dates: start: 20230507
  5. TEGRETOL [Suspect]
     Active Substance: CARBAMAZEPINE
     Indication: Product administration error
     Dosage: 200 MG
     Route: 048
     Dates: start: 20230507
  6. RIVOTRIL [Suspect]
     Active Substance: CLONAZEPAM
     Indication: Product administration error
     Dosage: 1 MG (1/2CP DE 2MG)
     Route: 048
     Dates: start: 20230507
  7. VIMPAT [Suspect]
     Active Substance: LACOSAMIDE
     Indication: Product administration error
     Dosage: 200 MG (2CP DE 100MG)
     Route: 048
     Dates: start: 20230507

REACTIONS (2)
  - Coma [Unknown]
  - Product administration error [Unknown]

NARRATIVE: CASE EVENT DATE: 20230507
